FAERS Safety Report 6037590-1 (Version None)
Quarter: 2009Q1

REPORT INFORMATION
  Report Type: 
  Country: None (occurrence: None)
  Receive Date: 20090114
  Receipt Date: 20090114
  Transmission Date: 20090719
  Serious: Yes (Hospitalization)
  Sender: FDA-Public Use
  Company Number: US-B.I. PHARMACEUTICALS,INC./RIDGEFIELD-2008-BP-17248BP

PATIENT
  Age: 83 Year
  Sex: Female
  Weight: 83 kg

DRUGS (10)
  1. CATAPRES-TTS-1 [Suspect]
     Indication: HYPERTENSION
     Dosage: .2MG
     Dates: start: 20080701
  2. ACIPHEX [Concomitant]
     Indication: GASTROOESOPHAGEAL REFLUX DISEASE
     Dosage: 20MG
     Route: 048
  3. SYNTHROID [Concomitant]
     Indication: THYROID DISORDER
     Dosage: 100MCG
     Route: 048
  4. VITAMIN D [Concomitant]
     Dosage: 400MG
  5. CITRUCEL [Concomitant]
  6. NORVASC [Concomitant]
     Dosage: 10MG
  7. ATIVAN [Concomitant]
  8. COZAAR [Concomitant]
     Dosage: 50MG
  9. LOPRESSOR [Concomitant]
     Dosage: 50MG
  10. MIRALAX [Concomitant]
     Dosage: 17G

REACTIONS (3)
  - APPLICATION SITE ERYTHEMA [None]
  - APPLICATION SITE PRURITUS [None]
  - VENOUS INSUFFICIENCY [None]
